FAERS Safety Report 9128700 (Version 2)
Quarter: 2013Q1

REPORT INFORMATION
  Report Type: Report from Study
  Country: DK (occurrence: DK)
  Receive Date: 20130228
  Receipt Date: 20130318
  Transmission Date: 20140127
  Serious: Yes (Hospitalization, Disabling)
  Sender: FDA-Public Use
  Company Number: DK-AMGEN-DNKSP2013012929

PATIENT
  Age: 71 Year
  Sex: Male
  Weight: 70 kg

DRUGS (19)
  1. PEGFILGRASTIM [Suspect]
     Indication: DIFFUSE LARGE B-CELL LYMPHOMA
     Dosage: 6 MG, UNK
     Route: 058
     Dates: start: 20110406
  2. RITUXIMAB [Suspect]
     Indication: DIFFUSE LARGE B-CELL LYMPHOMA
     Dosage: 700 MG, UNK
     Route: 042
     Dates: start: 20110405
  3. RITUXIMAB [Suspect]
     Dosage: 700 MG, UNK
     Route: 042
     Dates: start: 20110428, end: 20110502
  4. RITUXIMAB [Suspect]
     Dosage: 700 MG, UNK
     Route: 042
     Dates: start: 20110512
  5. PREDNISOLONE [Suspect]
     Indication: DIFFUSE LARGE B-CELL LYMPHOMA
     Dosage: 100 MG, UNK
     Route: 048
     Dates: start: 20110405, end: 20110409
  6. PREDNISOLONE [Suspect]
     Dosage: 100 MG, UNK
     Route: 048
     Dates: start: 20110428, end: 20110502
  7. PREDNISOLONE [Suspect]
     Dosage: 100 MG, UNK
     Route: 048
     Dates: start: 20110512, end: 20110516
  8. CYCLOPHOSPHAMIDE [Suspect]
     Indication: DIFFUSE LARGE B-CELL LYMPHOMA
     Dosage: 1394 MG, UNK
     Route: 042
     Dates: start: 20110405, end: 20110405
  9. CYCLOPHOSPHAMIDE [Suspect]
     Dosage: 1425 MG, UNK
     Route: 042
     Dates: start: 20110428, end: 20110428
  10. CYCLOPHOSPHAMIDE [Suspect]
     Dosage: 1380 MG, UNK
     Route: 042
     Dates: start: 20110512, end: 20110512
  11. DOXORUBICIN [Suspect]
     Indication: DIFFUSE LARGE B-CELL LYMPHOMA
     Dosage: 93 MG, UNK
     Route: 042
     Dates: start: 20110405, end: 20110405
  12. DOXORUBICIN [Suspect]
     Dosage: 95 MG, UNK
     Route: 042
     Dates: start: 20110428
  13. DOXORUBICIN [Suspect]
     Dosage: 92.5 MG, UNK
     Route: 042
     Dates: start: 20110512, end: 20110512
  14. VINCRISTINE [Suspect]
     Indication: DIFFUSE LARGE B-CELL LYMPHOMA
     Dosage: 2 MG, UNK
     Route: 042
     Dates: start: 20110405, end: 20110405
  15. VINCRISTINE [Suspect]
     Dosage: 11 MG, UNK
     Route: 042
     Dates: start: 20110512
  16. VINBLASTINE [Suspect]
     Indication: DIFFUSE LARGE B-CELL LYMPHOMA
     Dosage: 11.4 MG, UNK
     Route: 042
     Dates: start: 20110428
  17. VINBLASTINE [Suspect]
     Dosage: 11 MG, UNK
     Route: 042
     Dates: start: 20110512, end: 20110512
  18. VALACICLOVIR [Concomitant]
     Indication: PROPHYLAXIS
     Dosage: 500 MG, BID
     Route: 048
     Dates: start: 20110307
  19. SULFAMETHOXAZOLE AND TRIMETHOPRIM [Concomitant]
     Indication: PROPHYLAXIS
     Dosage: 1 DF, UNK
     Dates: start: 20110307, end: 20110413

REACTIONS (4)
  - Dehydration [Recovered/Resolved]
  - Diarrhoea [Not Recovered/Not Resolved]
  - Febrile neutropenia [Recovered/Resolved]
  - Paresis [Not Recovered/Not Resolved]
